FAERS Safety Report 8790752 (Version 1)
Quarter: 2012Q4

REPORT INFORMATION
  Report Type: Spontaneous
  Country: US (occurrence: None)
  Receive Date: 20120913
  Receipt Date: 20120913
  Transmission Date: 20130627
  Serious: Yes (Hospitalization)
  Sender: FDA-Public Use
  Company Number: None

PATIENT
  Age: 32 Year
  Sex: Female
  Weight: 128.1 kg

DRUGS (1)
  1. ALDOMET [Suspect]
     Route: 048

REACTIONS (7)
  - Liver injury [None]
  - Jaundice [None]
  - Dyspnoea [None]
  - Blood alkaline phosphatase increased [None]
  - Alanine aminotransferase increased [None]
  - Aspartate aminotransferase increased [None]
  - International normalised ratio increased [None]
